FAERS Safety Report 25065687 (Version 1)
Quarter: 2025Q1

REPORT INFORMATION
  Report Type: Report from Study
  Country: CA (occurrence: CA)
  Receive Date: 20250311
  Receipt Date: 20250311
  Transmission Date: 20250409
  Serious: Yes (Death, Hospitalization)
  Sender: AMGEN
  Company Number: CA-AMGEN-CANSL2025045796

PATIENT
  Sex: Female

DRUGS (1)
  1. AVSOLA [Suspect]
     Active Substance: INFLIXIMAB-AXXQ
     Indication: Rheumatoid arthritis
     Dosage: 400 MILLIGRAM, Q6WK
     Route: 065
     Dates: start: 20220518, end: 20250304

REACTIONS (1)
  - Pneumonia influenzal [Fatal]
